FAERS Safety Report 7796951-0 (Version None)
Quarter: 2011Q4

REPORT INFORMATION
  Report Type: 
  Country: None (occurrence: None)
  Receive Date: 20111005
  Receipt Date: 20110929
  Transmission Date: 20120403
  Serious: Yes (Death)
  Sender: FDA-Public Use
  Company Number: US-SANOFI-AVENTIS-2011SA063858

PATIENT
  Sex: Male

DRUGS (7)
  1. JEVTANA KIT [Suspect]
     Route: 041
     Dates: start: 20101026, end: 20101026
  2. JEVTANA KIT [Suspect]
     Indication: PROSTATE CANCER
     Route: 041
     Dates: start: 20101005, end: 20101005
  3. JEVTANA KIT [Suspect]
     Indication: PALLIATIVE CARE
     Route: 041
     Dates: start: 20101005, end: 20101005
  4. JEVTANA KIT [Suspect]
     Route: 041
     Dates: start: 20101026, end: 20101026
  5. NEUPOGEN [Concomitant]
     Route: 065
     Dates: start: 20101005, end: 20101005
  6. NEUPOGEN [Concomitant]
     Route: 065
     Dates: start: 20101026, end: 20101026
  7. HORMONES AND RELATED AGENTS [Concomitant]
     Route: 065

REACTIONS (1)
  - DEATH [None]
